FAERS Safety Report 12888894 (Version 2)
Quarter: 2016Q4

REPORT INFORMATION
  Report Type: Spontaneous
  Country: IT (occurrence: IT)
  Receive Date: 20161027
  Receipt Date: 20161130
  Transmission Date: 20170207
  Serious: Yes (Hospitalization)
  Sender: FDA-Public Use
  Company Number: IT-TEVA-703379ACC

PATIENT
  Age: 92 Year
  Sex: Female

DRUGS (7)
  1. METFORMIN HYDROCHLORIDE. [Suspect]
     Active Substance: METFORMIN HYDROCHLORIDE
     Indication: TYPE 2 DIABETES MELLITUS
     Dosage: 1500 MILLIGRAM DAILY;
     Route: 048
  2. ACARPHAGE - 50 MG COMPRESSE - MERCK SERONO S.P.A. [Suspect]
     Active Substance: ACARBOSE
     Indication: TYPE 2 DIABETES MELLITUS
     Dosage: 3 DOSAGE FORMS DAILY;
     Route: 048
  3. CARDIOASPIRIN - 100 MG COMPRESSE GASTRORESISTENTI [Concomitant]
     Active Substance: ASPIRIN
     Indication: THROMBOSIS PROPHYLAXIS
     Dosage: 1 DF
     Route: 048
     Dates: start: 20120801
  4. PRAVASELECT - 40 MG COMPRESSE [Concomitant]
     Indication: HYPERLIPIDAEMIA
     Dosage: 1 DF
     Route: 048
     Dates: start: 20120801
  5. DROMOS - 500 MG COMPRESSE RIVESTITE CON FILM [Concomitant]
     Indication: ARTERIAL DISORDER
     Dosage: 4 DF
     Route: 048
     Dates: start: 20120801
  6. TRIATEC HCT - 5 MG + 25 MG COMPRESSE [Concomitant]
     Indication: HYPERTENSION
     Dosage: 1 DF
     Route: 048
     Dates: start: 20120801
  7. CARVIPRESS - 25 MG COMPRESSE [Concomitant]
     Indication: HYPERTENSION
     Dosage: 1 DF
     Route: 048
     Dates: start: 20160801

REACTIONS (3)
  - Diarrhoea [Recovered/Resolved]
  - General physical health deterioration [Unknown]
  - Dehydration [Unknown]

NARRATIVE: CASE EVENT DATE: 20160814
